FAERS Safety Report 14211043 (Version 3)
Quarter: 2018Q3

REPORT INFORMATION
  Report Type: Report from Study
  Country: None (occurrence: US)
  Receive Date: 20171121
  Receipt Date: 20180724
  Transmission Date: 20181010
  Serious: Yes (Other)
  Sender: FDA-Public Use
  Company Number: US-BAUSCH-BL-2017-031700

PATIENT
  Age: 61 Year
  Sex: Female
  Weight: 103.06 kg

DRUGS (3)
  1. XIFAXAN [Suspect]
     Active Substance: RIFAXIMIN
     Indication: POUCHITIS
     Route: 065
     Dates: start: 20130219, end: 20170606
  2. XIFAXAN [Suspect]
     Active Substance: RIFAXIMIN
     Indication: ANAL INFLAMMATION
     Route: 065
     Dates: start: 20171228
  3. XIFAXAN [Suspect]
     Active Substance: RIFAXIMIN
     Indication: OFF LABEL USE

REACTIONS (5)
  - Off label use [Not Recovered/Not Resolved]
  - Gastrointestinal disorder [Unknown]
  - Malaise [Unknown]
  - Treatment noncompliance [Unknown]
  - Ileal ulcer [Recovered/Resolved]

NARRATIVE: CASE EVENT DATE: 20130219
